FAERS Safety Report 8013863-8 (Version None)
Quarter: 2011Q4

REPORT INFORMATION
  Report Type: 
  Country: None (occurrence: None)
  Receive Date: 20111229
  Receipt Date: 20111228
  Transmission Date: 20120403
  Serious: Yes (Disabling)
  Sender: FDA-Public Use
  Company Number: IT-ROCHE-1025793

PATIENT
  Sex: Female

DRUGS (2)
  1. REBETOL [Concomitant]
     Route: 048
  2. PEGASYS [Suspect]
     Indication: HEPATITIS C
     Route: 058
     Dates: start: 20110401, end: 20110601

REACTIONS (5)
  - IRRITABILITY [None]
  - MUSCLE SPASMS [None]
  - FACIAL SPASM [None]
  - SKIN SENSITISATION [None]
  - DYSPNOEA [None]
